APPROVED DRUG PRODUCT: BIAXIN
Active Ingredient: CLARITHROMYCIN
Strength: 250MG **Federal Register determination that product was not discontinued or withdrawn for safety or effectiveness reasons**
Dosage Form/Route: TABLET;ORAL
Application: N050662 | Product #001
Applicant: ABBVIE INC
Approved: Oct 31, 1991 | RLD: Yes | RS: No | Type: DISCN